FAERS Safety Report 9598550 (Version 1)
Quarter: 2013Q4

REPORT INFORMATION
  Report Type: Spontaneous
  Country: US (occurrence: US)
  Receive Date: 20131004
  Receipt Date: 20131004
  Transmission Date: 20140711
  Serious: No
  Sender: FDA-Public Use
  Company Number: US-AMGEN-USASP2013024450

PATIENT
  Age: 51 Year
  Sex: Female

DRUGS (15)
  1. ENBREL [Suspect]
     Indication: PRODUCT USED FOR UNKNOWN INDICATION
     Dosage: 50 MG, QWK
     Route: 058
  2. TRAMADOL [Concomitant]
     Dosage: 50 MG, UNK
  3. ATENOLOL [Concomitant]
     Dosage: 25 MG, UNK
  4. NIFEDIAC CC [Concomitant]
     Dosage: 30 MG, UNK
  5. HYDROCHLOROTH [Concomitant]
     Dosage: 12.5 MG, UNK
  6. LOSARTAN [Concomitant]
     Dosage: 25 MG, UNK
  7. VITAMIN D                          /00107901/ [Concomitant]
     Dosage: 2000 UNIT, UNK
  8. FLEXERIL                           /00428402/ [Concomitant]
     Dosage: 5 MG, UNK
  9. PROAIR HFA [Concomitant]
     Dosage: UNK
  10. CALCIUM [Concomitant]
     Dosage: 500 UNK, UNK
  11. MULTIVITAMINS, PLAIN [Concomitant]
     Dosage: UNK
  12. FOLIC ACID [Concomitant]
     Dosage: UNK
  13. ALBUTEROL                          /00139501/ [Concomitant]
     Dosage: 90 MUG, UNK
  14. METHOTREXATE [Concomitant]
     Dosage: 1 G, UNK
  15. PERCOCET                           /00446701/ [Concomitant]
     Dosage: 2.5-325

REACTIONS (2)
  - Pain [Unknown]
  - Joint stiffness [Unknown]
